FAERS Safety Report 24901156 (Version 2)
Quarter: 2025Q1

REPORT INFORMATION
  Report Type: Spontaneous
  Country: KR (occurrence: None)
  Receive Date: 20250129
  Receipt Date: 20250227
  Transmission Date: 20250409
  Serious: Yes (Death, Hospitalization, Other)
  Sender: INCYTE
  Company Number: KR-INCYTE CORPORATION-2025IN000894

PATIENT
  Age: 76 Year

DRUGS (2)
  1. RUXOLITINIB [Suspect]
     Active Substance: RUXOLITINIB
     Indication: Myelofibrosis
     Dosage: 10 MILLIGRAM, BID
  2. PELABRESIB [Suspect]
     Active Substance: PELABRESIB
     Indication: Myelofibrosis
     Dosage: 50 MILLIGRAM, QD

REACTIONS (3)
  - Death [Fatal]
  - Tuberculosis of central nervous system [Not Recovered/Not Resolved]
  - Headache [Unknown]
